FAERS Safety Report 8348736-4 (Version None)
Quarter: 2012Q2

REPORT INFORMATION
  Report Type: 
  Country: None (occurrence: None)
  Receive Date: 20120510
  Receipt Date: 20120507
  Transmission Date: 20120825
  Serious: No
  Sender: FDA-Public Use
  Company Number: US-PFIZER INC-2012111992

PATIENT
  Sex: Female
  Weight: 91 kg

DRUGS (4)
  1. ACCUPRIL [Concomitant]
     Indication: HYPERTENSION
     Dosage: 20 MG, DAILY
  2. NEURONTIN [Suspect]
     Indication: NEUROPATHY PERIPHERAL
     Dosage: 300 MG, 2X/DAY
     Route: 048
  3. NEURONTIN [Concomitant]
     Dosage: 300 MG, HALF IN MORNING AND HALF AT NIGHT
  4. NEURONTIN [Concomitant]
     Dosage: 300 MG, 2X/DAY
     Route: 048

REACTIONS (2)
  - SOMNOLENCE [None]
  - DIZZINESS [None]
